FAERS Safety Report 20923744 (Version 3)
Quarter: 2022Q2

REPORT INFORMATION
  Report Type: Report from Study
  Country: NL (occurrence: None)
  Receive Date: 20220607
  Receipt Date: 20220613
  Transmission Date: 20220721
  Serious: Yes (Death, Hospitalization)
  Sender: FDA-Public Use
  Company Number: NL-ROCHE-3112594

PATIENT

DRUGS (1)
  1. RITUXIMAB [Suspect]
     Active Substance: RITUXIMAB
     Indication: B-cell lymphoma
     Dosage: ON 04/AUG/2021, 17/JAN/2022, 14/MAR/2022 LAST DOSE OF RITUXIMAB PRIOR TO EVENT
     Route: 065
     Dates: end: 20220314

REACTIONS (2)
  - COVID-19 [Fatal]
  - Sinusitis [Unknown]

NARRATIVE: CASE EVENT DATE: 20220228
